FAERS Safety Report 8012846-1 (Version None)
Quarter: 2011Q4

REPORT INFORMATION
  Report Type: 
  Country: None (occurrence: None)
  Receive Date: 20111229
  Receipt Date: 20111220
  Transmission Date: 20120403
  Serious: Yes (Hospitalization)
  Sender: FDA-Public Use
  Company Number: DE-BRISTOL-MYERS SQUIBB COMPANY-16306417

PATIENT
  Age: 19 Year
  Sex: Female

DRUGS (7)
  1. CYCLOPHOSPHAMIDE [Suspect]
     Indication: HODGKIN'S DISEASE
     Dosage: LAST DOSE:05UL2011
     Route: 042
     Dates: start: 20110705
  2. ETOPOSIDE [Suspect]
     Indication: HODGKIN'S DISEASE
     Dosage: LAST DOSE:7JUL11,31JUL11-100MG/M2,RESTARTED:29JUL2011.
     Route: 042
     Dates: start: 20110705
  3. BLEOMYCIN SULFATE [Suspect]
     Indication: HODGKIN'S DISEASE
     Route: 042
     Dates: start: 20110805
  4. RITUXIMAB [Suspect]
     Indication: HODGKIN'S DISEASE
     Dosage: INF, LAST DOSE:05JUL11,29JUL2011, RESTARTED:29JUL2011-ONG.
     Route: 042
     Dates: start: 20110705
  5. PROCARBAZINE HYDROCHLORIDE [Suspect]
     Indication: HODGKIN'S DISEASE
     Dosage: LAST DOSE:JUL2011.RESTARTED:29JUL2011
     Route: 048
     Dates: start: 20110705
  6. DOXORUBICIN HCL [Suspect]
     Indication: HODGKIN'S DISEASE
     Dosage: INF,LAST DOSE:05JULY2011.RESTARTED:29JUL11-ONG.
     Route: 042
     Dates: start: 20110705
  7. PREDNISONE TAB [Suspect]
     Indication: HODGKIN'S DISEASE
     Dosage: LAST DOSE:12JUL2011,11AUG2011, RESTARTED:29JUL2011.
     Route: 048
     Dates: start: 20110705

REACTIONS (7)
  - FEBRILE NEUTROPENIA [None]
  - SEPSIS [None]
  - CHILLS [None]
  - IRON DEFICIENCY ANAEMIA [None]
  - PRESYNCOPE [None]
  - UROSEPSIS [None]
  - PYREXIA [None]
